FAERS Safety Report 9431198 (Version 2)
Quarter: 2013Q3

REPORT INFORMATION
  Report Type: Spontaneous
  Country: DZ (occurrence: DZ)
  Receive Date: 20130730
  Receipt Date: 20130805
  Transmission Date: 20140515
  Serious: Yes (Other)
  Sender: FDA-Public Use
  Company Number: DZ-ROCHE-1233687

PATIENT
  Sex: Female

DRUGS (4)
  1. ACTEMRA [Suspect]
     Indication: RHEUMATOID ARTHRITIS
     Route: 042
     Dates: start: 201304
  2. ACTEMRA [Suspect]
     Dosage: THIRD INFUSION
     Route: 042
     Dates: start: 20130605, end: 201307
  3. METHOTREXATE [Suspect]
     Indication: RHEUMATOID ARTHRITIS
     Route: 048
     Dates: start: 201304
  4. PRECORTISYL [Suspect]
     Indication: RHEUMATOID ARTHRITIS
     Route: 065
     Dates: start: 201304

REACTIONS (7)
  - Orthostatic hypotension [Recovered/Resolved]
  - Vertigo [Recovered/Resolved]
  - Tachycardia [Recovered/Resolved]
  - Tachypnoea [Recovered/Resolved]
  - Headache [Recovered/Resolved]
  - Loss of consciousness [Recovered/Resolved]
  - Hypersensitivity [Recovered/Resolved]
